FAERS Safety Report 11860740 (Version 2)
Quarter: 2016Q1

REPORT INFORMATION
  Report Type: Report from Study
  Country: CA (occurrence: CA)
  Receive Date: 20151222
  Receipt Date: 20160104
  Transmission Date: 20160526
  Serious: Yes (Other)
  Sender: FDA-Public Use
  Company Number: PHHY2015CA149862

PATIENT
  Sex: Female

DRUGS (3)
  1. COSENTYX [Suspect]
     Active Substance: SECUKINUMAB
     Indication: PSORIASIS
     Dosage: 300 MG, QMO
     Route: 058
     Dates: start: 20151219
  2. CLOBEX [Concomitant]
     Active Substance: CLOBETASOL PROPIONATE
     Indication: PSORIASIS
     Route: 065
  3. NEORAL [Suspect]
     Active Substance: CYCLOSPORINE
     Indication: PSORIASIS
     Dosage: 200 MG, QD
     Route: 048
     Dates: end: 2015

REACTIONS (7)
  - Blood creatinine increased [Unknown]
  - Psoriasis [Recovered/Resolved]
  - Skin burning sensation [Unknown]
  - Skin fissures [Recovered/Resolved]
  - Skin haemorrhage [Unknown]
  - Poor quality sleep [Unknown]
  - Skin irritation [Unknown]

NARRATIVE: CASE EVENT DATE: 2015
